FAERS Safety Report 18055344 (Version 2)
Quarter: 2021Q1

REPORT INFORMATION
  Report Type: Spontaneous
  Country: US (occurrence: US)
  Receive Date: 20200722
  Receipt Date: 20210115
  Transmission Date: 20210419
  Serious: Yes (Hospitalization, Other)
  Sender: FDA-Public Use
  Company Number: US-GILEAD-2020-0484353

PATIENT
  Age: 52 Year
  Sex: Male
  Weight: 71.2 kg

DRUGS (51)
  1. NORVIR [Concomitant]
     Active Substance: RITONAVIR
  2. NAPROXEN. [Concomitant]
     Active Substance: NAPROXEN
  3. HYDROCODONE [Concomitant]
     Active Substance: HYDROCODONE
  4. PROMETHAZINE [Concomitant]
     Active Substance: PROMETHAZINE HYDROCHLORIDE
  5. RIZATRIPTAN. [Concomitant]
     Active Substance: RIZATRIPTAN
  6. GABAPENTIN. [Concomitant]
     Active Substance: GABAPENTIN
  7. OMEPRAZOLE. [Concomitant]
     Active Substance: OMEPRAZOLE
  8. AMOXICILLIN. [Concomitant]
     Active Substance: AMOXICILLIN
  9. EGRIFTA [Concomitant]
     Active Substance: TESAMORELIN ACETATE
  10. DEXAMETHASONE. [Concomitant]
     Active Substance: DEXAMETHASONE
  11. TRUVADA [Suspect]
     Active Substance: EMTRICITABINE\TENOFOVIR DISOPROXIL FUMARATE
     Indication: HIV INFECTION
     Dosage: UNK
     Route: 048
     Dates: start: 2004, end: 201111
  12. KALETRA [Concomitant]
     Active Substance: LOPINAVIR\RITONAVIR
  13. PREZISTA [Concomitant]
     Active Substance: DARUNAVIR ETHANOLATE
  14. SUMATRIPTAN. [Concomitant]
     Active Substance: SUMATRIPTAN
  15. LOSARTAN. [Concomitant]
     Active Substance: LOSARTAN
  16. BENZONATATE. [Concomitant]
     Active Substance: BENZONATATE
  17. VITAMIN D3 [Concomitant]
     Active Substance: CHOLECALCIFEROL
  18. ISENTRESS [Concomitant]
     Active Substance: RALTEGRAVIR POTASSIUM
  19. PREZCOBIX [Concomitant]
     Active Substance: COBICISTAT\DARUNAVIR ETHANOLATE
  20. AMBIEN [Concomitant]
     Active Substance: ZOLPIDEM TARTRATE
  21. AZITHROMYCIN ANHYDROUS. [Concomitant]
     Active Substance: AZITHROMYCIN ANHYDROUS
  22. PROCHLORPERAZINE. [Concomitant]
     Active Substance: PROCHLORPERAZINE
  23. BELSOMRA [Concomitant]
     Active Substance: SUVOREXANT
  24. INTELENCE [Concomitant]
     Active Substance: ETRAVIRINE
  25. TIVICAY [Concomitant]
     Active Substance: DOLUTEGRAVIR SODIUM
  26. TRAZODONE [Concomitant]
     Active Substance: TRAZODONE HYDROCHLORIDE
  27. PROVENTIL [Concomitant]
     Active Substance: ALBUTEROL
  28. VIAGRA [Concomitant]
     Active Substance: SILDENAFIL CITRATE
  29. CEPHALEXIN [CEFALEXIN] [Concomitant]
     Active Substance: CEPHALEXIN
  30. ZOLPIDEM [Concomitant]
     Active Substance: ZOLPIDEM TARTRATE
  31. OXYCODONE [Concomitant]
     Active Substance: OXYCODONE
  32. PREDNISONE. [Concomitant]
     Active Substance: PREDNISONE
  33. LYRICA [Concomitant]
     Active Substance: PREGABALIN
  34. PHOSLO [Concomitant]
     Active Substance: CALCIUM ACETATE
  35. PIFELTRO [Concomitant]
     Active Substance: DORAVIRINE
  36. TYBOST [Concomitant]
     Active Substance: COBICISTAT
  37. TIZANIDINE. [Concomitant]
     Active Substance: TIZANIDINE
  38. ONDANSETRON [Concomitant]
     Active Substance: ONDANSETRON
  39. LISINOPRIL. [Concomitant]
     Active Substance: LISINOPRIL
  40. FROVA [Concomitant]
     Active Substance: FROVATRIPTAN SUCCINATE
  41. ECOTRIN [Concomitant]
     Active Substance: ASPIRIN
  42. ATORVASTATIN [Concomitant]
     Active Substance: ATORVASTATIN
  43. DIAZEPAM. [Concomitant]
     Active Substance: DIAZEPAM
  44. NITROSTAT [Concomitant]
     Active Substance: NITROGLYCERIN
  45. TERBINAFINE. [Concomitant]
     Active Substance: TERBINAFINE
  46. EMTRIVA [Concomitant]
     Active Substance: EMTRICITABINE
  47. CYCLOBENZAPRINE. [Concomitant]
     Active Substance: CYCLOBENZAPRINE
  48. ESCITALOPRAM [Concomitant]
     Active Substance: ESCITALOPRAM OXALATE
  49. PENICILLIN VK [Concomitant]
     Active Substance: PENICILLIN V POTASSIUM
  50. LOSARTAN/HCTZ [Concomitant]
     Active Substance: HYDROCHLOROTHIAZIDE\LOSARTAN
  51. LUNESTA [Concomitant]
     Active Substance: ESZOPICLONE

REACTIONS (5)
  - End stage renal disease [Not Recovered/Not Resolved]
  - Renal failure [Recovered/Resolved]
  - Chronic kidney disease [Not Recovered/Not Resolved]
  - Pain [Not Recovered/Not Resolved]
  - Anxiety [Not Recovered/Not Resolved]

NARRATIVE: CASE EVENT DATE: 20111031
